FAERS Safety Report 5644366-3 (Version None)
Quarter: 2008Q1

REPORT INFORMATION
  Report Type: 
  Country: None (occurrence: None)
  Receive Date: 20080229
  Receipt Date: 20080218
  Transmission Date: 20080703
  Serious: Yes (Hospitalization)
  Sender: FDA-Public Use
  Company Number: FR-BRISTOL-MYERS SQUIBB COMPANY-14090690

PATIENT
  Age: 51 Year
  Sex: Male

DRUGS (5)
  1. ENDOXAN [Suspect]
     Indication: WEGENER'S GRANULOMATOSIS
     Route: 042
     Dates: start: 20080114, end: 20080114
  2. BACTRIM [Suspect]
     Indication: INFECTION
     Dosage: 1 DOSAGE FORM = 0.5
     Route: 048
     Dates: start: 20080111, end: 20080130
  3. CANCIDAS [Suspect]
     Indication: ASPERGILLOSIS
     Route: 042
     Dates: start: 20071226, end: 20080120
  4. VFEND [Suspect]
     Indication: ASPERGILLOSIS
     Route: 048
     Dates: start: 20080121
  5. TAZOCILLINE [Concomitant]
     Dates: start: 20080105, end: 20080118

REACTIONS (2)
  - ALANINE AMINOTRANSFERASE INCREASED [None]
  - GAMMA-GLUTAMYLTRANSFERASE INCREASED [None]
